FAERS Safety Report 19221082 (Version 2)
Quarter: 2021Q2

REPORT INFORMATION
  Report Type: Spontaneous
  Country: JP (occurrence: JP)
  Receive Date: 20210505
  Receipt Date: 20210521
  Transmission Date: 20210717
  Serious: Yes (Death, Other)
  Sender: FDA-Public Use
  Company Number: JP-ANIPHARMA-2021-JP-000193

PATIENT
  Age: 85 Year
  Sex: Male

DRUGS (10)
  1. CANDESARTAN CILEXETIL. [Suspect]
     Active Substance: CANDESARTAN CILEXETIL
     Indication: PRODUCT USED FOR UNKNOWN INDICATION
     Dosage: 4 MG/DAY, UNKNOWN FREQUENCY
     Route: 048
  2. ATELEC [Suspect]
     Active Substance: CILNIDIPINE
     Dosage: 5 MG/DAY, UNKNOWN FREQUENCY
     Route: 048
  3. DARBEPOETIN ALFA [Concomitant]
     Active Substance: DARBEPOETIN ALFA
     Dosage: 40?60UG, UNKNOWN FREQ
     Route: 065
  4. TAKECAB [Suspect]
     Active Substance: VONOPRAZAN FUMARATE
     Dosage: 10 MG/DAY, UNKNOWN FREQ.
     Route: 048
  5. REMITCH [Suspect]
     Active Substance: NALFURAFINE HYDROCHLORIDE
     Dosage: UNK UNK, UNKNOWN FREQ
     Route: 048
  6. ROXADUSTAT. [Suspect]
     Active Substance: ROXADUSTAT
     Route: 048
     Dates: start: 20210330
  7. GASCON [Suspect]
     Active Substance: DIMETHICONE
     Dosage: UNK UNK, UNKNOWN FREQ.UNK UNK, UNKNOWN FREQ.
     Route: 065
  8. DONEPEZIL HYDROCHLORIDE. [Suspect]
     Active Substance: DONEPEZIL HYDROCHLORIDE
     Dosage: 5 MG/DAY, UNKNOWN FREQUENCY
     Route: 048
  9. ZESULAN [Suspect]
     Active Substance: MEQUITAZINE
     Dosage: 6 MG/DAY, UNKNOWN FREQUENCY
     Route: 048
  10. REFLEX [Suspect]
     Active Substance: MIRTAZAPINE
     Dosage: 15 MG/DAY, UNKNOWN FREQUENCY
     Route: 048

REACTIONS (2)
  - Metastatic neoplasm [Fatal]
  - Marasmus [Fatal]
